FAERS Safety Report 25480627 (Version 1)
Quarter: 2025Q2

REPORT INFORMATION
  Report Type: Spontaneous
  Country: DE (occurrence: DE)
  Receive Date: 20250625
  Receipt Date: 20250625
  Transmission Date: 20250717
  Serious: Yes (Other)
  Sender: JAZZ
  Company Number: DE-JAZZ PHARMACEUTICALS-2025-DE-015451

PATIENT

DRUGS (1)
  1. VYXEOS [Suspect]
     Active Substance: CYTARABINE\DAUNORUBICIN
     Indication: Acute myeloid leukaemia

REACTIONS (3)
  - Oligohydramnios [Recovering/Resolving]
  - Foetal growth restriction [Recovering/Resolving]
  - Maternal exposure during pregnancy [Unknown]
